FAERS Safety Report 6071631-0 (Version None)
Quarter: 2009Q1

REPORT INFORMATION
  Report Type: 
  Country: None (occurrence: None)
  Receive Date: 20090209
  Receipt Date: 20090209
  Transmission Date: 20090719
  Serious: No
  Sender: FDA-Public Use
  Company Number: None

PATIENT
  Sex: Female
  Weight: 132.4503 kg

DRUGS (12)
  1. ABILIFY [Suspect]
     Indication: DEPRESSION
     Dosage: 2 MG 1 A DAY PO
     Route: 048
     Dates: start: 20090119, end: 20090124
  2. ASPIRIN [Concomitant]
  3. SOMA [Concomitant]
  4. MORPHINE [Concomitant]
  5. OXYCODONE HCL [Concomitant]
  6. CATAPRES [Concomitant]
  7. SYTHROID [Concomitant]
  8. CELEXA [Concomitant]
  9. PREDNISONE [Concomitant]
  10. ATIVAN [Concomitant]
  11. NEURONTIN [Concomitant]
  12. UROCIT-K [Concomitant]

REACTIONS (18)
  - ABDOMINAL PAIN UPPER [None]
  - ANXIETY [None]
  - ARTHRALGIA [None]
  - CONSTIPATION [None]
  - CONTUSION [None]
  - DIZZINESS [None]
  - DYSPHAGIA [None]
  - DYSURIA [None]
  - FATIGUE [None]
  - INFLUENZA LIKE ILLNESS [None]
  - INSOMNIA [None]
  - METAMORPHOPSIA [None]
  - MYALGIA [None]
  - NAUSEA [None]
  - PALPITATIONS [None]
  - PANIC REACTION [None]
  - RENAL PAIN [None]
  - TINNITUS [None]
